FAERS Safety Report 9034322 (Version 1)
Quarter: 2013Q1

REPORT INFORMATION
  Report Type: Spontaneous
  Country: US (occurrence: None)
  Receive Date: 20130116
  Receipt Date: 20130116
  Transmission Date: 20140127
  Serious: No
  Sender: FDA-Public Use
  Company Number: None

PATIENT
  Age: 57 Year
  Sex: Female

DRUGS (5)
  1. MYCOPHENOLATE TABLET 500 MG [Suspect]
     Dosage: 1000 MG  TWICE DAILY  PO
     Route: 048
     Dates: start: 20121219, end: 20130115
  2. ORENCIA [Concomitant]
  3. HYDROCHLOROTHIAZIDE / TRIAMTERENE [Concomitant]
  4. LAMOTRIGINE [Concomitant]
  5. DEXAMETHASONE [Concomitant]

REACTIONS (1)
  - Headache [None]
